FAERS Safety Report 21229644 (Version 5)
Quarter: 2022Q4

REPORT INFORMATION
  Report Type: Spontaneous
  Country: US (occurrence: US)
  Receive Date: 20220818
  Receipt Date: 20221020
  Transmission Date: 20230113
  Serious: Yes (Other)
  Sender: FDA-Public Use
  Company Number: US-PFIZER INC-PV202200045344

PATIENT
  Age: 83 Year
  Sex: Female

DRUGS (1)
  1. XELJANZ XR [Suspect]
     Active Substance: TOFACITINIB CITRATE
     Indication: Rheumatoid arthritis
     Dosage: 11 MG

REACTIONS (10)
  - Tooth fracture [Unknown]
  - Facial bones fracture [Unknown]
  - Fall [Unknown]
  - Rheumatoid arthritis [Unknown]
  - Drug dependence [Unknown]
  - Loss of personal independence in daily activities [Unknown]
  - Dysgraphia [Unknown]
  - Hypoacusis [Unknown]
  - Joint range of motion decreased [Unknown]
  - Mental disorder [Unknown]
